FAERS Safety Report 6763316-X (Version None)
Quarter: 2010Q2

REPORT INFORMATION
  Report Type: 
  Country: None (occurrence: None)
  Receive Date: 20100608
  Receipt Date: 20100608
  Transmission Date: 20101027
  Serious: Yes (Hospitalization)
  Sender: FDA-Public Use
  Company Number: None

PATIENT
  Sex: Female
  Weight: 68.64 kg

DRUGS (2)
  1. CARBOPLATIN [Suspect]
     Dosage: 780 MG
     Dates: end: 20100602
  2. TAXOL [Suspect]
     Dosage: 136 MG
     Dates: end: 20100602

REACTIONS (2)
  - OXYGEN SATURATION DECREASED [None]
  - PLEURAL EFFUSION [None]
